FAERS Safety Report 8764585 (Version 2)
Quarter: 2012Q4

REPORT INFORMATION
  Report Type: 
  Country: US (occurrence: US)
  Receive Date: 20120831
  Receipt Date: 20121127
  Transmission Date: 20130627
  Serious: Yes (Other)
  Sender: FDA-Public Use
  Company Number: US-ASTRAZENECA-2012SE57228

PATIENT
  Age: 71 Year
  Sex: Female

DRUGS (1)
  1. NEXIUM [Suspect]
     Route: 048

REACTIONS (6)
  - Fall [Unknown]
  - Pelvic fracture [Unknown]
  - Sinusitis [Unknown]
  - Adverse event [Unknown]
  - Muscle spasms [Unknown]
  - Malaise [Unknown]
